FAERS Safety Report 4264528-X (Version None)
Quarter: 2004Q1

REPORT INFORMATION
  Report Type: 
  Country: None (occurrence: None)
  Receive Date: 20040102
  Receipt Date: 20031219
  Transmission Date: 20041129
  Serious: Yes (Other)
  Sender: FDA-Public Use
  Company Number: 2003126116

PATIENT
  Age: 64 Year
  Sex: Male
  Weight: 72.5755 kg

DRUGS (7)
  1. LIPITOR [Suspect]
     Indication: BLOOD CHOLESTEROL
     Dates: start: 20020101, end: 20020101
  2. POTASSIUM (POTASSIUM) [Concomitant]
  3. TOCOPHEROL CONCENTRATE CAP [Concomitant]
  4. GARLIC (GARLIC) [Concomitant]
  5. CRATAEGUS (CRATAEGUS) [Concomitant]
  6. HYDROCHLOROTHIAZIDE [Concomitant]
  7. ASCORBIC ACID [Concomitant]

REACTIONS (4)
  - DRUG INEFFECTIVE [None]
  - MYALGIA [None]
  - PAIN IN EXTREMITY [None]
  - PROSTATE CANCER [None]
